FAERS Safety Report 13902137 (Version 1)
Quarter: 2017Q3

REPORT INFORMATION
  Report Type: Spontaneous
  Country: US (occurrence: US)
  Receive Date: 20170824
  Receipt Date: 20170824
  Transmission Date: 20171127
  Serious: No
  Sender: FDA-Public Use
  Company Number: US-ROCHE-1130021

PATIENT
  Age: 56 Year

DRUGS (6)
  1. HERCEPTIN [Suspect]
     Active Substance: TRASTUZUMAB
     Dosage: MAINTAINANCE DOSE
     Route: 065
     Dates: start: 19990412
  2. TAXOL [Concomitant]
     Active Substance: PACLITAXEL
     Dosage: IV OVER 1 HOUR
     Route: 065
     Dates: start: 19990412
  3. HERCEPTIN [Suspect]
     Active Substance: TRASTUZUMAB
     Indication: BREAST CANCER
     Dosage: LOADING DOSE
     Route: 065
     Dates: start: 19990412
  4. TAXOL [Concomitant]
     Active Substance: PACLITAXEL
     Dosage: IV OVER 1 HOUR
     Route: 065
     Dates: start: 19990413
  5. HERCEPTIN [Suspect]
     Active Substance: TRASTUZUMAB
     Dosage: OVER 30 MIN
     Route: 065
     Dates: start: 19990414
  6. TAXOL [Concomitant]
     Active Substance: PACLITAXEL
     Dosage: IV OVER 1 HOUR
     Route: 065
     Dates: start: 19990414

REACTIONS (5)
  - Pyrexia [Unknown]
  - Dry mouth [Unknown]
  - Vomiting [Unknown]
  - Chills [Unknown]
  - Dysuria [Unknown]

NARRATIVE: CASE EVENT DATE: 19990413
